FAERS Safety Report 8832183 (Version 1)
Quarter: 2012Q4

REPORT INFORMATION
  Report Type: 
  Country: US (occurrence: US)
  Receive Date: 20121009
  Receipt Date: 20121009
  Transmission Date: 20130627
  Serious: Yes (Hospitalization, Other)
  Sender: FDA-Public Use
  Company Number: US-009507513-2010SP055778

PATIENT

DRUGS (3)
  1. NUVARING [Suspect]
     Indication: CONTRACEPTION
     Dates: start: 20081021, end: 20081121
  2. LEVOTHYROXINE SODIUM [Concomitant]
     Indication: HYPOTHYROIDISM
     Dosage: 75 mg, UNK
     Dates: start: 2007
  3. ABILIFY [Concomitant]
     Indication: BIPOLAR DISORDER
     Dosage: 10 mg, UNK
     Dates: start: 2008, end: 2009

REACTIONS (8)
  - Anticoagulation drug level [Unknown]
  - Pulmonary embolism [Unknown]
  - Asthma [Unknown]
  - Adverse drug reaction [Unknown]
  - Pain in extremity [Unknown]
  - Alopecia [Unknown]
  - Stress [Unknown]
  - Anxiety disorder due to a general medical condition [Unknown]
